FAERS Safety Report 15917820 (Version 6)
Quarter: 2022Q1

REPORT INFORMATION
  Report Type: Spontaneous
  Country: US (occurrence: US)
  Receive Date: 20190205
  Receipt Date: 20220207
  Transmission Date: 20220423
  Serious: No
  Sender: FDA-Public Use
  Company Number: US-PFIZER INC-2019023775

PATIENT
  Age: 72 Year
  Sex: Female

DRUGS (1)
  1. XELJANZ XR [Suspect]
     Active Substance: TOFACITINIB CITRATE
     Dosage: 11 MG, UNK
     Dates: start: 20181208

REACTIONS (8)
  - Joint stiffness [Unknown]
  - Arthralgia [Unknown]
  - Back pain [Unknown]
  - Weight decreased [Unknown]
  - Psoriasis [Unknown]
  - Hypoaesthesia [Unknown]
  - Pain [Unknown]
  - Pain in extremity [Unknown]
